FAERS Safety Report 23020304 (Version 2)
Quarter: 2023Q4

REPORT INFORMATION
  Report Type: Report from Study
  Country: US (occurrence: None)
  Receive Date: 20231003
  Receipt Date: 20231006
  Transmission Date: 20240109
  Serious: Yes (Death, Other)
  Sender: FDA-Public Use
  Company Number: 2023A211159

PATIENT
  Age: 26323 Day
  Sex: Male

DRUGS (1)
  1. TAGRISSO [Suspect]
     Active Substance: OSIMERTINIB
     Indication: Product used for unknown indication
     Route: 048

REACTIONS (7)
  - Dysphagia [Unknown]
  - Decreased appetite [Unknown]
  - Hypophagia [Unknown]
  - Neoplasm malignant [Fatal]
  - Vomiting [Unknown]
  - Wrong technique in product usage process [Unknown]
  - Overdose [Unknown]
